FAERS Safety Report 23367185 (Version 1)
Quarter: 2024Q1

REPORT INFORMATION
  Report Type: Spontaneous
  Country: US (occurrence: US)
  Receive Date: 20240104
  Receipt Date: 20240104
  Transmission Date: 20240410
  Serious: No
  Sender: FDA-Public Use
  Company Number: US-ALKERMES INC.-ALK-2023-004728

PATIENT
  Age: 35 Year
  Sex: Male

DRUGS (1)
  1. ARISTADA [Suspect]
     Active Substance: ARIPIPRAZOLE LAUROXIL
     Indication: Schizoaffective disorder
     Dosage: 662 MILLIGRAM, QMO
     Route: 030

REACTIONS (3)
  - Incorrect dose administered [Unknown]
  - Needle issue [Recovered/Resolved]
  - Off label use [Not Recovered/Not Resolved]
